FAERS Safety Report 5638885-3 (Version None)
Quarter: 2008Q1

REPORT INFORMATION
  Report Type: 
  Country: None (occurrence: None)
  Receive Date: 20080225
  Receipt Date: 20080225
  Transmission Date: 20080703
  Serious: Yes (Hospitalization)
  Sender: FDA-Public Use
  Company Number: None

PATIENT
  Age: 31 Year
  Sex: Female
  Weight: 71.6683 kg

DRUGS (1)
  1. YAZ [Suspect]
     Indication: CONTRACEPTION
     Dosage: 1 PILL EVERY DAY PO
     Route: 048
     Dates: start: 20080215, end: 20080222

REACTIONS (3)
  - CHEST DISCOMFORT [None]
  - DEHYDRATION [None]
  - HEART RATE INCREASED [None]
